FAERS Safety Report 9183847 (Version 1)
Quarter: 2013Q1

REPORT INFORMATION
  Report Type: Spontaneous
  Country: US (occurrence: US)
  Receive Date: 20130322
  Receipt Date: 20130322
  Transmission Date: 20140127
  Serious: No
  Sender: FDA-Public Use
  Company Number: US-BRISTOL-MYERS SQUIBB COMPANY-16632218

PATIENT
  Age: 53 Year
  Sex: Female

DRUGS (2)
  1. ERBITUX [Suspect]
     Indication: TONGUE NEOPLASM MALIGNANT STAGE UNSPECIFIED
     Dosage: LOADING DOSE:640MG,THEN 400 MG WEEKLY DURING RADIATION?LAST TX:27APR2012.
     Route: 042
     Dates: start: 20120309
  2. BENADRYL [Concomitant]
     Dosage: BEFORE INF
     Route: 042

REACTIONS (2)
  - Infusion related reaction [Unknown]
  - Oral pain [Unknown]
